FAERS Safety Report 9298084 (Version 2)
Quarter: 2013Q3

REPORT INFORMATION
  Report Type: Report from Study
  Country: JP (occurrence: JP)
  Receive Date: 20130520
  Receipt Date: 20130731
  Transmission Date: 20140515
  Serious: Yes (Other)
  Sender: FDA-Public Use
  Company Number: JP-ELI_LILLY_AND_COMPANY-JP201305003484

PATIENT
  Age: 85 Year
  Sex: Male

DRUGS (1)
  1. TERIPARATIDE [Suspect]
     Dosage: UNK
     Route: 058

REACTIONS (2)
  - Fracture [Unknown]
  - Bone deformity [Not Recovered/Not Resolved]
